FAERS Safety Report 24677166 (Version 1)
Quarter: 2024Q4

REPORT INFORMATION
  Report Type: Spontaneous
  Country: JP (occurrence: JP)
  Receive Date: 20241129
  Receipt Date: 20241129
  Transmission Date: 20250115
  Serious: Yes (Other)
  Sender: TAKEDA
  Company Number: JP-TAKEDA-2024TJP016898

PATIENT
  Age: 41 Year
  Sex: Male

DRUGS (6)
  1. ENTYVIO [Suspect]
     Active Substance: VEDOLIZUMAB
     Indication: Colitis ulcerative
     Dosage: 300 MILLIGRAM, Q8WEEKS
  2. MESALAMINE [Concomitant]
     Active Substance: MESALAMINE
     Dosage: 4800 MILLIGRAM
  3. AZATHIOPRINE [Concomitant]
     Active Substance: AZATHIOPRINE
     Dosage: 50 MILLIGRAM
  4. PREDNISOLONE [Concomitant]
     Active Substance: PREDNISOLONE
     Dosage: 30 MILLIGRAM
  5. PREDNISOLONE [Concomitant]
     Active Substance: PREDNISOLONE
     Dosage: UNK
  6. INFLIXIMAB [Concomitant]
     Active Substance: INFLIXIMAB
     Dosage: UNK

REACTIONS (3)
  - Colitis ulcerative [Unknown]
  - Platelet count increased [Unknown]
  - White blood cell count increased [Unknown]
